FAERS Safety Report 9255813 (Version 1)
Quarter: 2013Q2

REPORT INFORMATION
  Report Type: Spontaneous
  Country: BE (occurrence: BE)
  Receive Date: 20130425
  Receipt Date: 20130425
  Transmission Date: 20140414
  Serious: Yes (Death, Hospitalization)
  Sender: FDA-Public Use
  Company Number: BE-BAXTER-2013BAX014563

PATIENT
  Sex: Male

DRUGS (3)
  1. EXTRANEAL, SOLUTION POUR DIALYSE P?RITON?ALE [Suspect]
     Indication: RENAL FAILURE CHRONIC
     Route: 033
  2. NUTRINEAL PERITONEAL DIALYSIS 4 ? 1,1 % DACIDES AMIN?S, SOLUTION POUR [Suspect]
     Indication: RENAL FAILURE CHRONIC
     Route: 033
  3. PHYSIONEAL 40 GLUCOSE 1.36% [Suspect]
     Indication: RENAL FAILURE CHRONIC
     Route: 033

REACTIONS (6)
  - Hepatic cirrhosis [Fatal]
  - Renal failure chronic [Fatal]
  - Refusal of treatment by patient [Unknown]
  - Treatment noncompliance [Unknown]
  - Morbid thoughts [Unknown]
  - Suicidal ideation [None]
